FAERS Safety Report 9288808 (Version 1)
Quarter: 2013Q2

REPORT INFORMATION
  Report Type: Spontaneous
  Country: US (occurrence: US)
  Receive Date: 20130514
  Receipt Date: 20130514
  Transmission Date: 20140414
  Serious: No
  Sender: FDA-Public Use
  Company Number: US-OPTIMER PHARMACEUTICALS, INC.-20110068

PATIENT
  Sex: 0

DRUGS (2)
  1. DIFICID [Suspect]
     Indication: CLOSTRIDIAL INFECTION
     Dosage: 200 MG, BID
     Route: 048
     Dates: start: 20111222
  2. CYMBALTA [Concomitant]
     Indication: DEPRESSION
     Dosage: 90 MG, QD
     Route: 048

REACTIONS (2)
  - Pyrexia [Unknown]
  - Hyperhidrosis [Unknown]
